FAERS Safety Report 6900814-X (Version None)
Quarter: 2010Q3

REPORT INFORMATION
  Report Type: 
  Country: None (occurrence: None)
  Receive Date: 20100803
  Receipt Date: 20100722
  Transmission Date: 20110219
  Serious: Yes (Other)
  Sender: FDA-Public Use
  Company Number: US-PFIZER INC-2008022468

PATIENT
  Sex: Male
  Weight: 81.633 kg

DRUGS (8)
  1. CHANTIX [Suspect]
     Indication: SMOKING CESSATION THERAPY
     Dosage: 1 MG, 2X/DAY
     Route: 048
     Dates: start: 20080207
  2. ALPRAZOLAM [Suspect]
     Indication: ANXIETY
     Dosage: 2 MG, 4X/DAY
  3. ALPRAZOLAM [Suspect]
     Indication: PANIC DISORDER
  4. OXYCODONE [Concomitant]
  5. ACETYLSALICYLIC ACID SRT [Concomitant]
  6. REMERON [Concomitant]
     Indication: DEPRESSION
  7. AMBIEN [Concomitant]
     Indication: INSOMNIA
  8. TRAZODONE [Concomitant]
     Indication: INSOMNIA
     Dosage: UNK

REACTIONS (11)
  - ANXIETY [None]
  - BLOOD IRON DECREASED [None]
  - DRUG INEFFECTIVE [None]
  - DYSGEUSIA [None]
  - DYSPNOEA [None]
  - FATIGUE [None]
  - INCORRECT DOSE ADMINISTERED [None]
  - NAUSEA [None]
  - ORAL SURGERY [None]
  - PANIC ATTACK [None]
  - STRESS [None]
